FAERS Safety Report 12569106 (Version 2)
Quarter: 2016Q3

REPORT INFORMATION
  Report Type: Report from Study
  Country: US (occurrence: US)
  Receive Date: 20160719
  Receipt Date: 20160819
  Transmission Date: 20161109
  Serious: Yes (Hospitalization)
  Sender: FDA-Public Use
  Company Number: US-JNJFOC-20160622836

PATIENT
  Sex: Male

DRUGS (1)
  1. IMBRUVICA [Suspect]
     Active Substance: IBRUTINIB
     Indication: CHRONIC LYMPHOCYTIC LEUKAEMIA
     Route: 065
     Dates: start: 20160531, end: 20160711

REACTIONS (4)
  - Adverse drug reaction [Unknown]
  - Limb mass [Not Recovered/Not Resolved]
  - Hospitalisation [Unknown]
  - Contusion [Unknown]

NARRATIVE: CASE EVENT DATE: 2016
